FAERS Safety Report 8008140-5 (Version None)
Quarter: 2011Q4

REPORT INFORMATION
  Report Type: 
  Country: None (occurrence: None)
  Receive Date: 20111227
  Receipt Date: 20111220
  Transmission Date: 20120403
  Serious: Yes (Other)
  Sender: FDA-Public Use
  Company Number: US-ASTRAZENECA-2011SE66772

PATIENT
  Age: 79 Year
  Sex: Female

DRUGS (1)
  1. NEXIUM [Suspect]
     Route: 048

REACTIONS (8)
  - PERIORBITAL HAEMATOMA [None]
  - FALL [None]
  - CONTUSION [None]
  - BALANCE DISORDER [None]
  - OEDEMA PERIPHERAL [None]
  - PAIN [None]
  - WRIST FRACTURE [None]
  - UPPER LIMB FRACTURE [None]
